FAERS Safety Report 5146088-4 (Version None)
Quarter: 2006Q4

REPORT INFORMATION
  Report Type: 
  Country: None (occurrence: None)
  Receive Date: 20061108
  Receipt Date: 20061031
  Transmission Date: 20070319
  Serious: Yes (Other)
  Sender: FDA-Public Use
  Company Number: 2006UW20934

PATIENT
  Age: 74 Year
  Sex: Female

DRUGS (10)
  1. ATACAND [Suspect]
     Route: 048
     Dates: start: 20061001
  2. ADALAT [Concomitant]
     Route: 048
  3. APO-BISOPROLOL [Concomitant]
     Route: 048
  4. GOLYTELY [Concomitant]
  5. TYLENOL [Concomitant]
     Route: 048
  6. NOVORAPID [Concomitant]
  7. NOVOLIN GE NPH [Concomitant]
     Route: 058
  8. NOVOSEMIDE [Concomitant]
     Route: 048
  9. ASAPHEN EC [Concomitant]
     Route: 048
  10. PMS DOCUSATE SODIUM [Concomitant]

REACTIONS (3)
  - CONDITION AGGRAVATED [None]
  - HYPERGLYCAEMIA [None]
  - ILL-DEFINED DISORDER [None]
